FAERS Safety Report 7515644-8 (Version None)
Quarter: 2011Q2

REPORT INFORMATION
  Report Type: 
  Country: None (occurrence: None)
  Receive Date: 20110601
  Receipt Date: 20100720
  Transmission Date: 20111010
  Serious: Yes (Other)
  Sender: FDA-Public Use
  Company Number: US-PFIZER INC-2010055094

PATIENT
  Sex: Male
  Weight: 86.2 kg

DRUGS (1)
  1. CHANTIX [Suspect]
     Indication: SMOKING CESSATION THERAPY
     Dosage: 1 MG, 2X/DAY
     Route: 048
     Dates: start: 20100417, end: 20100429

REACTIONS (4)
  - ARTHRALGIA [None]
  - THINKING ABNORMAL [None]
  - DEPRESSION [None]
  - NAUSEA [None]
